FAERS Safety Report 25773159 (Version 1)
Quarter: 2025Q3

REPORT INFORMATION
  Report Type: Spontaneous
  Country: US (occurrence: US)
  Receive Date: 20250908
  Receipt Date: 20250908
  Transmission Date: 20251020
  Serious: No
  Sender: SPRINGWORKS THERAPEUTIC
  Company Number: US-SPRINGWORKS THERAPEUTICS-SW-003115

PATIENT
  Age: 47 Year
  Sex: Female

DRUGS (1)
  1. OGSIVEO [Suspect]
     Active Substance: NIROGACESTAT HYDROBROMIDE
     Indication: Desmoid tumour
     Dates: start: 2024

REACTIONS (7)
  - Hidradenitis [Unknown]
  - Androgens increased [Unknown]
  - Hot flush [Unknown]
  - Menopause [Unknown]
  - Fatigue [Unknown]
  - Diarrhoea [Unknown]
  - Amenorrhoea [Unknown]
